FAERS Safety Report 15997807 (Version 3)
Quarter: 2019Q3

REPORT INFORMATION
  Report Type: Report from Study
  Country: US (occurrence: US)
  Receive Date: 20190222
  Receipt Date: 20190710
  Transmission Date: 20191004
  Serious: Yes (Other)
  Sender: FDA-Public Use
  Company Number: US-INCYTE CORPORATION-2019IN001526

PATIENT

DRUGS (4)
  1. JAKAFI [Suspect]
     Active Substance: RUXOLITINIB
     Dosage: 10 MILLIGRAM, QD
     Route: 048
     Dates: start: 201901
  2. ASPIRIN. [Concomitant]
     Active Substance: ASPIRIN
     Indication: PRODUCT USED FOR UNKNOWN INDICATION
     Route: 065
  3. BABY ASPIRIN [Concomitant]
     Active Substance: ASPIRIN
     Indication: PRODUCT USED FOR UNKNOWN INDICATION
     Route: 065
  4. JAKAFI [Suspect]
     Active Substance: RUXOLITINIB
     Indication: HAEMOGLOBIN DECREASED
     Dosage: 10 MG, QD
     Route: 048
     Dates: start: 201902

REACTIONS (9)
  - Viral infection [Unknown]
  - Pyrexia [Unknown]
  - Inappropriate schedule of product administration [Unknown]
  - Nausea [Unknown]
  - Haemoglobin decreased [Unknown]
  - Chills [Unknown]
  - Vomiting [Unknown]
  - Off label use [Unknown]
  - Dizziness [Unknown]
